FAERS Safety Report 18856572 (Version 2)
Quarter: 2021Q3

REPORT INFORMATION
  Report Type: Report from Study
  Country: US (occurrence: US)
  Receive Date: 20210207
  Receipt Date: 20210802
  Transmission Date: 20211014
  Serious: Yes (Hospitalization, Other)
  Sender: FDA-Public Use
  Company Number: US-SHIRE-US202024901

PATIENT
  Age: 57 Year
  Sex: Female

DRUGS (1)
  1. HUMAN IMMUNOGLOBULIN; HYALURONIDASE [Suspect]
     Active Substance: HUMAN IMMUNOGLOBULIN G\HYALURONIDASE RECOMBINANT HUMAN
     Indication: PRIMARY IMMUNODEFICIENCY SYNDROME
     Dosage: 40 GRAM, Q3WEEKS
     Route: 065

REACTIONS (11)
  - Cardiac murmur [Unknown]
  - Gastrointestinal fistula [Unknown]
  - Road traffic accident [Unknown]
  - Sigmoidectomy [Unknown]
  - Tooth abscess [Unknown]
  - Hypoaesthesia [Unknown]
  - Infected fistula [Unknown]
  - Urinary tract infection [Unknown]
  - Vesical fistula [Unknown]
  - Joint injury [Unknown]
  - Spinal disorder [Unknown]

NARRATIVE: CASE EVENT DATE: 20200730
